FAERS Safety Report 9780165 (Version 3)
Quarter: 2014Q1

REPORT INFORMATION
  Report Type: Spontaneous
  Country: AU (occurrence: AU)
  Receive Date: 20131223
  Receipt Date: 20140319
  Transmission Date: 20141002
  Serious: Yes (Other)
  Sender: FDA-Public Use
  Company Number: AU-ABBVIE-13P-008-1130650-00

PATIENT
  Sex: Female

DRUGS (3)
  1. HUMIRA [Suspect]
     Indication: CROHN^S DISEASE
     Route: 058
     Dates: start: 2009
  2. HUMIRA [Suspect]
     Dates: start: 2013
  3. METHOTREXATE [Concomitant]
     Indication: CROHN^S DISEASE

REACTIONS (8)
  - Colectomy [Unknown]
  - Proctocolectomy [Unknown]
  - Ileal fistula [Recovered/Resolved]
  - Ileal fistula [Unknown]
  - Serum sickness [Unknown]
  - Ileostomy [Unknown]
  - Crohn^s disease [Unknown]
  - Enterocutaneous fistula [Unknown]
